FAERS Safety Report 6978737-X (Version None)
Quarter: 2010Q3

REPORT INFORMATION
  Report Type: 
  Country: None (occurrence: None)
  Receive Date: 20100913
  Receipt Date: 20100903
  Transmission Date: 20110219
  Serious: Yes (Other)
  Sender: FDA-Public Use
  Company Number: B0674302A

PATIENT
  Sex: Male

DRUGS (10)
  1. CEFTAZIDIME [Suspect]
     Indication: ANTIBIOTIC THERAPY
     Route: 042
     Dates: start: 20100522, end: 20100530
  2. AMIKACIN [Suspect]
     Indication: ANTIBIOTIC THERAPY
     Route: 042
     Dates: start: 20100522, end: 20100530
  3. ENDOXAN [Suspect]
     Dosage: 3580MG CYCLIC
     Route: 042
     Dates: start: 20100514, end: 20100515
  4. SANDIMMUNE [Suspect]
     Dosage: 80MGK CYCLIC
     Route: 042
     Dates: start: 20100522
  5. LASIX [Concomitant]
  6. RANIDIL [Concomitant]
  7. URSODIOL [Concomitant]
  8. ZOVIRAX [Concomitant]
  9. MYCOSTATIN [Concomitant]
  10. DECADRON [Concomitant]

REACTIONS (1)
  - RENAL FAILURE [None]
